FAERS Safety Report 24567548 (Version 1)
Quarter: 2024Q4

REPORT INFORMATION
  Report Type: Report from Study
  Country: CA (occurrence: CA)
  Receive Date: 20241031
  Receipt Date: 20241031
  Transmission Date: 20250114
  Serious: Yes (Hospitalization)
  Sender: ABBVIE
  Company Number: CA-ABBVIE-5983873

PATIENT
  Age: 42 Year
  Sex: Male

DRUGS (1)
  1. RINVOQ [Suspect]
     Active Substance: UPADACITINIB
     Indication: Colitis ulcerative
     Route: 048
     Dates: start: 20241015, end: 20241024

REACTIONS (5)
  - Defaecation urgency [Unknown]
  - Therapeutic product effect incomplete [Unknown]
  - Abdominal pain [Unknown]
  - Frequent bowel movements [Unknown]
  - Colitis ulcerative [Unknown]

NARRATIVE: CASE EVENT DATE: 20241001
